FAERS Safety Report 25415740 (Version 3)
Quarter: 2025Q3

REPORT INFORMATION
  Report Type: Spontaneous
  Country: CA (occurrence: CA)
  Receive Date: 20250610
  Receipt Date: 20250901
  Transmission Date: 20251021
  Serious: Yes (Hospitalization, Other)
  Sender: Haleon PLC
  Company Number: CA-002147023-NVSC2021CA012042

PATIENT
  Age: 75 Year
  Sex: Female
  Weight: 70 kg

DRUGS (229)
  1. DICLOFENAC [Suspect]
     Active Substance: DICLOFENAC
     Indication: Arthralgia
  2. DICLOFENAC [Suspect]
     Active Substance: DICLOFENAC
  3. VITAMIN D3 [Suspect]
     Active Substance: CHOLECALCIFEROL
     Indication: Product used for unknown indication
  4. VITAMIN D3 [Suspect]
     Active Substance: CHOLECALCIFEROL
  5. VITAMIN D3 [Suspect]
     Active Substance: CHOLECALCIFEROL
  6. VITAMIN D3 [Suspect]
     Active Substance: CHOLECALCIFEROL
  7. VITAMIN D3 [Suspect]
     Active Substance: CHOLECALCIFEROL
  8. CHOLECALCIFEROL [Suspect]
     Active Substance: CHOLECALCIFEROL
     Indication: Product used for unknown indication
  9. CHOLECALCIFEROL [Suspect]
     Active Substance: CHOLECALCIFEROL
  10. CHOLECALCIFEROL [Suspect]
     Active Substance: CHOLECALCIFEROL
  11. CHOLECALCIFEROL [Suspect]
     Active Substance: CHOLECALCIFEROL
  12. CHOLECALCIFEROL [Suspect]
     Active Substance: CHOLECALCIFEROL
  13. CHOLECALCIFEROL [Suspect]
     Active Substance: CHOLECALCIFEROL
  14. CHOLECALCIFEROL [Suspect]
     Active Substance: CHOLECALCIFEROL
  15. CHOLECALCIFEROL [Suspect]
     Active Substance: CHOLECALCIFEROL
  16. NICOTINAMIDE [Suspect]
     Active Substance: NIACINAMIDE
     Indication: Product used for unknown indication
  17. NICOTINAMIDE [Suspect]
     Active Substance: NIACINAMIDE
  18. PSEUDOEPHEDRINE HYDROCHLORIDE [Suspect]
     Active Substance: PSEUDOEPHEDRINE HYDROCHLORIDE
     Indication: Product used for unknown indication
  19. VITAMIN C [Suspect]
     Active Substance: ASCORBIC ACID
     Indication: Product used for unknown indication
  20. VITAMIN C [Suspect]
     Active Substance: ASCORBIC ACID
  21. IPRATROPIUM [Suspect]
     Active Substance: IPRATROPIUM
     Indication: Rhinitis
  22. IPRATROPIUM [Suspect]
     Active Substance: IPRATROPIUM
     Indication: Product used for unknown indication
  23. IPRATROPIUM [Suspect]
     Active Substance: IPRATROPIUM
     Route: 045
  24. IPRATROPIUM [Suspect]
     Active Substance: IPRATROPIUM
  25. IPRATROPIUM [Suspect]
     Active Substance: IPRATROPIUM
     Route: 045
  26. IPRATROPIUM [Suspect]
     Active Substance: IPRATROPIUM
  27. IPRATROPIUM [Suspect]
     Active Substance: IPRATROPIUM
  28. IPRATROPIUM [Suspect]
     Active Substance: IPRATROPIUM
  29. IPRATROPIUM [Suspect]
     Active Substance: IPRATROPIUM
  30. PYRIDOXINE [Suspect]
     Active Substance: PYRIDOXINE
     Indication: Product used for unknown indication
  31. PYRIDOXINE [Suspect]
     Active Substance: PYRIDOXINE
     Indication: Rhinitis
     Route: 050
  32. PYRIDOXINE [Suspect]
     Active Substance: PYRIDOXINE
  33. PYRIDOXINE [Suspect]
     Active Substance: PYRIDOXINE
  34. PYRIDOXINE [Suspect]
     Active Substance: PYRIDOXINE
  35. PYRIDOXINE HYDROCHLORIDE [Suspect]
     Active Substance: PYRIDOXINE HYDROCHLORIDE
     Indication: Product used for unknown indication
  36. PYRIDOXINE HYDROCHLORIDE [Suspect]
     Active Substance: PYRIDOXINE HYDROCHLORIDE
     Indication: Rhinitis
     Route: 045
  37. PYRIDOXINE HYDROCHLORIDE [Suspect]
     Active Substance: PYRIDOXINE HYDROCHLORIDE
  38. PYRIDOXINE HYDROCHLORIDE [Suspect]
     Active Substance: PYRIDOXINE HYDROCHLORIDE
  39. PYRIDOXINE HYDROCHLORIDE [Suspect]
     Active Substance: PYRIDOXINE HYDROCHLORIDE
  40. NAPROXEN [Suspect]
     Active Substance: NAPROXEN
     Indication: Arthralgia
  41. NAPROXEN [Suspect]
     Active Substance: NAPROXEN
  42. NAPROXEN [Suspect]
     Active Substance: NAPROXEN
  43. NAPROXEN [Suspect]
     Active Substance: NAPROXEN
  44. ESTRADIOL [Suspect]
     Active Substance: ESTRADIOL
     Indication: Menopausal symptoms
  45. ESTRADIOL [Suspect]
     Active Substance: ESTRADIOL
     Indication: Arthralgia
  46. ESTRADIOL [Suspect]
     Active Substance: ESTRADIOL
  47. ESTRADIOL [Suspect]
     Active Substance: ESTRADIOL
  48. ATORVASTATIN [Concomitant]
     Active Substance: ATORVASTATIN
     Indication: Dyslipidaemia
  49. ATORVASTATIN [Concomitant]
     Active Substance: ATORVASTATIN
     Indication: Product used for unknown indication
  50. ATORVASTATIN [Concomitant]
     Active Substance: ATORVASTATIN
     Indication: Dyslipidaemia
  51. VITAMINS [Suspect]
     Active Substance: VITAMINS
     Indication: Product used for unknown indication
  52. TUMS ULTRA [Suspect]
     Active Substance: CALCIUM CARBONATE
     Indication: Product used for unknown indication
  53. TUMS ULTRA [Suspect]
     Active Substance: CALCIUM CARBONATE
  54. TUMS ULTRA [Suspect]
     Active Substance: CALCIUM CARBONATE
  55. IPRATROPIUM BROMIDE [Suspect]
     Active Substance: IPRATROPIUM BROMIDE
     Indication: Rhinitis
  56. IPRATROPIUM BROMIDE [Suspect]
     Active Substance: IPRATROPIUM BROMIDE
     Indication: Product used for unknown indication
  57. IPRATROPIUM BROMIDE [Suspect]
     Active Substance: IPRATROPIUM BROMIDE
  58. IPRATROPIUM BROMIDE [Suspect]
     Active Substance: IPRATROPIUM BROMIDE
     Route: 045
  59. IPRATROPIUM BROMIDE [Suspect]
     Active Substance: IPRATROPIUM BROMIDE
  60. IPRATROPIUM BROMIDE [Suspect]
     Active Substance: IPRATROPIUM BROMIDE
  61. IPRATROPIUM BROMIDE [Suspect]
     Active Substance: IPRATROPIUM BROMIDE
  62. IPRATROPIUM BROMIDE [Suspect]
     Active Substance: IPRATROPIUM BROMIDE
  63. IPRATROPIUM BROMIDE [Suspect]
     Active Substance: IPRATROPIUM BROMIDE
  64. IPRATROPIUM BROMIDE [Suspect]
     Active Substance: IPRATROPIUM BROMIDE
  65. IPRATROPIUM BROMIDE [Suspect]
     Active Substance: IPRATROPIUM BROMIDE
  66. AZOPT [Suspect]
     Active Substance: BRINZOLAMIDE
     Indication: Glaucoma
  67. AZOPT [Suspect]
     Active Substance: BRINZOLAMIDE
  68. AZOPT [Suspect]
     Active Substance: BRINZOLAMIDE
  69. AZOPT [Suspect]
     Active Substance: BRINZOLAMIDE
  70. AZOPT [Suspect]
     Active Substance: BRINZOLAMIDE
  71. AZOPT [Suspect]
     Active Substance: BRINZOLAMIDE
  72. AZOPT [Suspect]
     Active Substance: BRINZOLAMIDE
  73. VITAMINS [Concomitant]
     Active Substance: VITAMINS
     Indication: Product used for unknown indication
  74. ADVIL [Suspect]
     Active Substance: IBUPROFEN
     Indication: Arthralgia
  75. PREGABALIN [Suspect]
     Active Substance: PREGABALIN
     Indication: Arthralgia
  76. PREGABALIN [Suspect]
     Active Substance: PREGABALIN
  77. PREGABALIN [Suspect]
     Active Substance: PREGABALIN
  78. PREGABALIN [Suspect]
     Active Substance: PREGABALIN
  79. PREGABALIN [Suspect]
     Active Substance: PREGABALIN
  80. AZARGA [Suspect]
     Active Substance: BRINZOLAMIDE\TIMOLOL MALEATE
     Indication: Glaucoma
  81. AZARGA [Suspect]
     Active Substance: BRINZOLAMIDE\TIMOLOL MALEATE
  82. AZARGA [Suspect]
     Active Substance: BRINZOLAMIDE\TIMOLOL MALEATE
  83. AZARGA [Suspect]
     Active Substance: BRINZOLAMIDE\TIMOLOL MALEATE
  84. AZARGA [Suspect]
     Active Substance: BRINZOLAMIDE\TIMOLOL MALEATE
  85. AZARGA [Suspect]
     Active Substance: BRINZOLAMIDE\TIMOLOL MALEATE
  86. AZARGA [Suspect]
     Active Substance: BRINZOLAMIDE\TIMOLOL MALEATE
  87. AZARGA [Suspect]
     Active Substance: BRINZOLAMIDE\TIMOLOL MALEATE
  88. AZARGA [Suspect]
     Active Substance: BRINZOLAMIDE\TIMOLOL MALEATE
  89. AZARGA [Suspect]
     Active Substance: BRINZOLAMIDE\TIMOLOL MALEATE
  90. AZARGA [Suspect]
     Active Substance: BRINZOLAMIDE\TIMOLOL MALEATE
  91. AZARGA [Suspect]
     Active Substance: BRINZOLAMIDE\TIMOLOL MALEATE
  92. AZARGA [Suspect]
     Active Substance: BRINZOLAMIDE\TIMOLOL MALEATE
  93. ACETAMINOPHEN\PSEUDOEPHEDRINE HYDROCHLORIDE [Concomitant]
     Active Substance: ACETAMINOPHEN\PSEUDOEPHEDRINE HYDROCHLORIDE
     Indication: Product used for unknown indication
  94. ACETAMINOPHEN\PSEUDOEPHEDRINE HYDROCHLORIDE [Concomitant]
     Active Substance: ACETAMINOPHEN\PSEUDOEPHEDRINE HYDROCHLORIDE
  95. ACETAMINOPHEN\PSEUDOEPHEDRINE HYDROCHLORIDE [Concomitant]
     Active Substance: ACETAMINOPHEN\PSEUDOEPHEDRINE HYDROCHLORIDE
  96. ACETAMINOPHEN\PSEUDOEPHEDRINE HYDROCHLORIDE [Concomitant]
     Active Substance: ACETAMINOPHEN\PSEUDOEPHEDRINE HYDROCHLORIDE
  97. ACETAMINOPHEN\PSEUDOEPHEDRINE HYDROCHLORIDE [Concomitant]
     Active Substance: ACETAMINOPHEN\PSEUDOEPHEDRINE HYDROCHLORIDE
  98. ACETAMINOPHEN [Suspect]
     Active Substance: ACETAMINOPHEN
     Indication: Product used for unknown indication
  99. ACETAMINOPHEN [Suspect]
     Active Substance: ACETAMINOPHEN
  100. ACETAMINOPHEN [Suspect]
     Active Substance: ACETAMINOPHEN
  101. ATORVASTATIN CALCIUM [Suspect]
     Active Substance: ATORVASTATIN CALCIUM
     Indication: Dyslipidaemia
  102. ATORVASTATIN CALCIUM [Suspect]
     Active Substance: ATORVASTATIN CALCIUM
  103. ATORVASTATIN CALCIUM [Suspect]
     Active Substance: ATORVASTATIN CALCIUM
  104. ATORVASTATIN CALCIUM [Suspect]
     Active Substance: ATORVASTATIN CALCIUM
  105. TELMISARTAN [Suspect]
     Active Substance: TELMISARTAN
     Indication: Hypertension
  106. TELMISARTAN [Suspect]
     Active Substance: TELMISARTAN
     Indication: Glaucoma
  107. TELMISARTAN [Suspect]
     Active Substance: TELMISARTAN
     Indication: Product used for unknown indication
  108. TELMISARTAN [Suspect]
     Active Substance: TELMISARTAN
  109. TELMISARTAN [Suspect]
     Active Substance: TELMISARTAN
  110. TELMISARTAN [Suspect]
     Active Substance: TELMISARTAN
  111. TELMISARTAN [Suspect]
     Active Substance: TELMISARTAN
  112. TELMISARTAN [Suspect]
     Active Substance: TELMISARTAN
  113. TELMISARTAN [Suspect]
     Active Substance: TELMISARTAN
  114. TELMISARTAN [Suspect]
     Active Substance: TELMISARTAN
  115. TELMISARTAN [Suspect]
     Active Substance: TELMISARTAN
  116. TELMISARTAN [Suspect]
     Active Substance: TELMISARTAN
  117. TELMISARTAN [Suspect]
     Active Substance: TELMISARTAN
  118. TELMISARTAN [Suspect]
     Active Substance: TELMISARTAN
  119. TELMISARTAN [Suspect]
     Active Substance: TELMISARTAN
  120. TELMISARTAN [Suspect]
     Active Substance: TELMISARTAN
  121. TELMISARTAN [Suspect]
     Active Substance: TELMISARTAN
  122. TELMISARTAN [Suspect]
     Active Substance: TELMISARTAN
  123. DICLOFENAC SODIUM [Suspect]
     Active Substance: DICLOFENAC SODIUM
     Indication: Arthralgia
  124. DICLOFENAC SODIUM [Suspect]
     Active Substance: DICLOFENAC SODIUM
  125. DICLOFENAC SODIUM [Suspect]
     Active Substance: DICLOFENAC SODIUM
  126. DICLOFENAC SODIUM [Suspect]
     Active Substance: DICLOFENAC SODIUM
  127. LATANOPROST [Suspect]
     Active Substance: LATANOPROST
     Indication: Glaucoma
  128. LATANOPROST [Suspect]
     Active Substance: LATANOPROST
  129. LATANOPROST [Suspect]
     Active Substance: LATANOPROST
  130. LATANOPROST [Suspect]
     Active Substance: LATANOPROST
  131. LATANOPROST [Suspect]
     Active Substance: LATANOPROST
  132. LATANOPROST [Suspect]
     Active Substance: LATANOPROST
  133. LATANOPROST [Suspect]
     Active Substance: LATANOPROST
  134. LATANOPROST [Suspect]
     Active Substance: LATANOPROST
  135. LATANOPROST [Suspect]
     Active Substance: LATANOPROST
  136. LATANOPROST [Suspect]
     Active Substance: LATANOPROST
  137. AMOXICILLIN TRIHYDRATE [Suspect]
     Active Substance: AMOXICILLIN
     Indication: Sinusitis
  138. AMOXICILLIN TRIHYDRATE [Suspect]
     Active Substance: AMOXICILLIN
  139. BRINZOLAMIDE\TIMOLOL MALEATE [Suspect]
     Active Substance: BRINZOLAMIDE\TIMOLOL MALEATE
     Indication: Glaucoma
  140. BRINZOLAMIDE\TIMOLOL MALEATE [Suspect]
     Active Substance: BRINZOLAMIDE\TIMOLOL MALEATE
  141. CLONAZEPAM [Suspect]
     Active Substance: CLONAZEPAM
     Indication: Product used for unknown indication
  142. CLONAZEPAM [Suspect]
     Active Substance: CLONAZEPAM
  143. ESTRADIOL [Suspect]
     Active Substance: ESTRADIOL
     Indication: Product used for unknown indication
  144. ESTRADIOL [Suspect]
     Active Substance: ESTRADIOL
  145. ESTRADIOL [Suspect]
     Active Substance: ESTRADIOL
  146. VITAMIN B6 [Concomitant]
     Active Substance: PYRIDOXINE HYDROCHLORIDE
     Indication: Product used for unknown indication
  147. VITAMIN B6 [Concomitant]
     Active Substance: PYRIDOXINE HYDROCHLORIDE
  148. VITAMIN B6 [Concomitant]
     Active Substance: PYRIDOXINE HYDROCHLORIDE
  149. ZOPICLONE [Suspect]
     Active Substance: ZOPICLONE
     Indication: Insomnia
  150. ZOPICLONE [Suspect]
     Active Substance: ZOPICLONE
     Indication: Sinusitis
  151. ZOPICLONE [Suspect]
     Active Substance: ZOPICLONE
     Indication: Dyslipidaemia
  152. ZOPICLONE [Suspect]
     Active Substance: ZOPICLONE
     Indication: Arthralgia
  153. ZOPICLONE [Suspect]
     Active Substance: ZOPICLONE
  154. ZOPICLONE [Suspect]
     Active Substance: ZOPICLONE
  155. ZOPICLONE [Suspect]
     Active Substance: ZOPICLONE
  156. ZOPICLONE [Suspect]
     Active Substance: ZOPICLONE
  157. ZOPICLONE [Suspect]
     Active Substance: ZOPICLONE
  158. ZOPICLONE [Suspect]
     Active Substance: ZOPICLONE
  159. ZOPICLONE [Suspect]
     Active Substance: ZOPICLONE
  160. ZOPICLONE [Suspect]
     Active Substance: ZOPICLONE
  161. ZOPICLONE [Suspect]
     Active Substance: ZOPICLONE
  162. ZOPICLONE [Suspect]
     Active Substance: ZOPICLONE
  163. ZOPICLONE [Suspect]
     Active Substance: ZOPICLONE
  164. ZOPICLONE [Suspect]
     Active Substance: ZOPICLONE
  165. ZOPICLONE [Suspect]
     Active Substance: ZOPICLONE
  166. ZOPICLONE [Suspect]
     Active Substance: ZOPICLONE
  167. ZOPICLONE [Suspect]
     Active Substance: ZOPICLONE
  168. ZOPICLONE [Suspect]
     Active Substance: ZOPICLONE
  169. ZOPICLONE [Suspect]
     Active Substance: ZOPICLONE
  170. ZOPICLONE [Suspect]
     Active Substance: ZOPICLONE
  171. BRINZOLAMIDE\TIMOLOL MALEATE [Suspect]
     Active Substance: BRINZOLAMIDE\TIMOLOL MALEATE
     Indication: Glaucoma
  172. BRINZOLAMIDE\TIMOLOL MALEATE [Suspect]
     Active Substance: BRINZOLAMIDE\TIMOLOL MALEATE
  173. BRINZOLAMIDE\TIMOLOL MALEATE [Suspect]
     Active Substance: BRINZOLAMIDE\TIMOLOL MALEATE
  174. BRINZOLAMIDE\TIMOLOL MALEATE [Suspect]
     Active Substance: BRINZOLAMIDE\TIMOLOL MALEATE
  175. BRINZOLAMIDE\TIMOLOL MALEATE [Suspect]
     Active Substance: BRINZOLAMIDE\TIMOLOL MALEATE
  176. BRINZOLAMIDE\TIMOLOL MALEATE [Suspect]
     Active Substance: BRINZOLAMIDE\TIMOLOL MALEATE
  177. BRINZOLAMIDE\TIMOLOL MALEATE [Suspect]
     Active Substance: BRINZOLAMIDE\TIMOLOL MALEATE
  178. BRINZOLAMIDE\TIMOLOL MALEATE [Suspect]
     Active Substance: BRINZOLAMIDE\TIMOLOL MALEATE
  179. BRINZOLAMIDE\TIMOLOL MALEATE [Suspect]
     Active Substance: BRINZOLAMIDE\TIMOLOL MALEATE
  180. BRINZOLAMIDE\TIMOLOL MALEATE [Suspect]
     Active Substance: BRINZOLAMIDE\TIMOLOL MALEATE
  181. BRINZOLAMIDE\TIMOLOL MALEATE [Suspect]
     Active Substance: BRINZOLAMIDE\TIMOLOL MALEATE
  182. BRINZOLAMIDE\TIMOLOL MALEATE [Suspect]
     Active Substance: BRINZOLAMIDE\TIMOLOL MALEATE
  183. BRINZOLAMIDE\TIMOLOL MALEATE [Suspect]
     Active Substance: BRINZOLAMIDE\TIMOLOL MALEATE
  184. BRINZOLAMIDE\TIMOLOL MALEATE [Suspect]
     Active Substance: BRINZOLAMIDE\TIMOLOL MALEATE
  185. BRINZOLAMIDE\TIMOLOL MALEATE [Suspect]
     Active Substance: BRINZOLAMIDE\TIMOLOL MALEATE
  186. ATORVASTATIN CALCIUM [Concomitant]
     Active Substance: ATORVASTATIN CALCIUM
     Indication: Product used for unknown indication
  187. ATORVASTATIN CALCIUM [Concomitant]
     Active Substance: ATORVASTATIN CALCIUM
     Indication: Dyslipidaemia
  188. ATORVASTATIN CALCIUM [Concomitant]
     Active Substance: ATORVASTATIN CALCIUM
  189. ATORVASTATIN CALCIUM [Concomitant]
     Active Substance: ATORVASTATIN CALCIUM
  190. ACETAMINOPHEN [Concomitant]
     Active Substance: ACETAMINOPHEN
     Indication: Product used for unknown indication
  191. ACETAMINOPHEN [Concomitant]
     Active Substance: ACETAMINOPHEN
  192. GABAPENTIN [Suspect]
     Active Substance: GABAPENTIN
     Indication: Arthralgia
  193. GABAPENTIN [Suspect]
     Active Substance: GABAPENTIN
  194. CHOLECALCIFEROL [Suspect]
     Active Substance: CHOLECALCIFEROL
     Indication: Product used for unknown indication
  195. CHOLECALCIFEROL [Suspect]
     Active Substance: CHOLECALCIFEROL
  196. CHOLECALCIFEROL [Suspect]
     Active Substance: CHOLECALCIFEROL
  197. CHOLECALCIFEROL [Suspect]
     Active Substance: CHOLECALCIFEROL
  198. CHOLECALCIFEROL [Concomitant]
     Active Substance: CHOLECALCIFEROL
     Indication: Product used for unknown indication
  199. CHOLECALCIFEROL [Concomitant]
     Active Substance: CHOLECALCIFEROL
  200. CLONAZEPAM [Suspect]
     Active Substance: CLONAZEPAM
     Indication: Product used for unknown indication
  201. CLONAZEPAM [Suspect]
     Active Substance: CLONAZEPAM
  202. BRINZOLAMIDE [Suspect]
     Active Substance: BRINZOLAMIDE
     Indication: Glaucoma
  203. BRINZOLAMIDE [Suspect]
     Active Substance: BRINZOLAMIDE
  204. BRINZOLAMIDE [Suspect]
     Active Substance: BRINZOLAMIDE
  205. BRINZOLAMIDE [Suspect]
     Active Substance: BRINZOLAMIDE
  206. BRINZOLAMIDE [Suspect]
     Active Substance: BRINZOLAMIDE
  207. AMOXICILLIN [Suspect]
     Active Substance: AMOXICILLIN
     Indication: Sinusitis
  208. AMOXICILLIN [Suspect]
     Active Substance: AMOXICILLIN
  209. IPRATROPIUM [Concomitant]
     Active Substance: IPRATROPIUM
     Indication: Product used for unknown indication
     Route: 045
  210. IPRATROPIUM [Concomitant]
     Active Substance: IPRATROPIUM
  211. DEXPANTHENOL [Suspect]
     Active Substance: DEXPANTHENOL
     Indication: Product used for unknown indication
  212. ERGOCALCIFEROL [Suspect]
     Active Substance: ERGOCALCIFEROL
     Indication: Product used for unknown indication
  213. ERGOCALCIFEROL [Suspect]
     Active Substance: ERGOCALCIFEROL
  214. VITAMIN A [Suspect]
     Active Substance: VITAMIN A
     Indication: Product used for unknown indication
  215. VITAMIN A [Suspect]
     Active Substance: VITAMIN A
  216. RIBOFLAVIN [Suspect]
     Active Substance: RIBOFLAVIN
     Indication: Product used for unknown indication
  217. RIBOFLAVIN [Suspect]
     Active Substance: RIBOFLAVIN
  218. ATORVASTATIN [Suspect]
     Active Substance: ATORVASTATIN
     Indication: Dyslipidaemia
  219. ATORVASTATIN [Suspect]
     Active Substance: ATORVASTATIN
  220. THIAMINE HYDROCHLORIDE [Suspect]
     Active Substance: THIAMINE HYDROCHLORIDE
     Indication: Product used for unknown indication
  221. THIAMINE HYDROCHLORIDE [Suspect]
     Active Substance: THIAMINE HYDROCHLORIDE
  222. VITAMINS [Suspect]
     Active Substance: VITAMINS
     Indication: Product used for unknown indication
  223. VITAMINS [Suspect]
     Active Substance: VITAMINS
  224. FOLIC ACID [Suspect]
     Active Substance: FOLIC ACID
     Indication: Product used for unknown indication
  225. CHLORPHENIRAMINE MALEATE\PSEUDOEPHEDRINE HYDROCHLORIDE [Suspect]
     Active Substance: CHLORPHENIRAMINE MALEATE\PSEUDOEPHEDRINE HYDROCHLORIDE
     Indication: Product used for unknown indication
  226. VITAMIN B6 [Suspect]
     Active Substance: PYRIDOXINE HYDROCHLORIDE
     Indication: Product used for unknown indication
  227. VITAMIN B6 [Suspect]
     Active Substance: PYRIDOXINE HYDROCHLORIDE
  228. CALCIUM CARBONATE\DIMETHICONE [Suspect]
     Active Substance: CALCIUM CARBONATE\DIMETHICONE
     Indication: Product used for unknown indication
  229. VITAMINS NOS [Suspect]
     Active Substance: VITAMINS
     Indication: Product used for unknown indication

REACTIONS (7)
  - Epidermal necrosis [Unknown]
  - Toxic epidermal necrolysis [Unknown]
  - Off label use [Recovered/Resolved]
  - Haemoglobin decreased [Unknown]
  - Nikolsky^s sign test [Recovered/Resolved]
  - Rash erythematous [Recovered/Resolved]
  - Rash papular [Unknown]
